FAERS Safety Report 12519857 (Version 1)
Quarter: 2016Q2

REPORT INFORMATION
  Report Type: Spontaneous
  Country: PT (occurrence: PT)
  Receive Date: 20160630
  Receipt Date: 20160630
  Transmission Date: 20160815
  Serious: Yes (Other)
  Sender: FDA-Public Use
  Company Number: PT-PFIZER INC-3157378

PATIENT
  Age: 54 Year
  Sex: Female

DRUGS (4)
  1. FLUOROURACIL. [Suspect]
     Active Substance: FLUOROURACIL
     Dosage: 600 MG/M2, FREQ: 1 WEEK, INTERVAL: 3
     Route: 041
  2. FLUOROURACIL. [Suspect]
     Active Substance: FLUOROURACIL
     Indication: COLON CANCER
     Dosage: 400 MG/M2, FREQ: 1 WEEK, INTERVAL: 3
     Route: 040
  3. OXALIPLATIN. [Suspect]
     Active Substance: OXALIPLATIN
     Indication: COLON CANCER
     Dosage: 85 MG/M2, ON DAY 1, FREQ:1 WEEK, INTERVAL: 3
     Route: 041
  4. CALCIUM FOLINATE [Suspect]
     Active Substance: LEUCOVORIN CALCIUM
     Indication: COLON CANCER
     Dosage: 200 MG/M2, FREQ: 1 WEEK, INTERVAL: 3
     Route: 041

REACTIONS (2)
  - Ocular toxicity [Recovered/Resolved]
  - Intracranial pressure increased [Unknown]
